FAERS Safety Report 5575429-9 (Version None)
Quarter: 2007Q4

REPORT INFORMATION
  Report Type: 
  Country: None (occurrence: None)
  Receive Date: 20071227
  Receipt Date: 20071203
  Transmission Date: 20080405
  Serious: No
  Sender: FDA-Public Use
  Company Number: US-BOEHRINGER INGELHEIM PHARMACEUTICALS, INC.-2007-BP-22449BP

PATIENT
  Sex: Female

DRUGS (9)
  1. MIRAPEX [Suspect]
     Indication: RESTLESS LEGS SYNDROME
     Route: 048
     Dates: start: 20051201, end: 20070601
  2. MIRAPEX [Suspect]
     Indication: MOVEMENT DISORDER
  3. MIRAPEX [Suspect]
     Indication: SLEEP DISORDER
  4. METHADONE HCL [Concomitant]
     Indication: ARTHRALGIA
  5. OXYCODONE HCL [Concomitant]
     Indication: ARTHRALGIA
  6. NAPROSYN [Concomitant]
     Indication: ARTHRALGIA
  7. ALPRAZOLAM [Concomitant]
  8. EFFEXOR XR [Concomitant]
  9. CYMBALTA [Concomitant]

REACTIONS (2)
  - EUPHORIC MOOD [None]
  - OBSESSIVE-COMPULSIVE DISORDER [None]
